FAERS Safety Report 8360485-5 (Version None)
Quarter: 2012Q2

REPORT INFORMATION
  Report Type: 
  Country: None (occurrence: None)
  Receive Date: 20120515
  Receipt Date: 20120501
  Transmission Date: 20120825
  Serious: Yes (Other)
  Sender: FDA-Public Use
  Company Number: DK-JNJFOC-20120503529

PATIENT
  Age: 26 Year
  Sex: Male

DRUGS (39)
  1. DOXORUBICIN HYDROCHLORIDE [Suspect]
     Route: 042
     Dates: start: 20080101
  2. ETOPOSIDE [Suspect]
     Route: 065
  3. CYCLOPHOSPHAMIDE [Suspect]
     Route: 065
  4. RITUXIMAB [Suspect]
     Route: 065
     Dates: start: 20080101
  5. CYCLOPHOSPHAMIDE [Suspect]
     Route: 065
  6. DOXORUBICIN HYDROCHLORIDE [Suspect]
     Route: 042
  7. VINCRISTINE [Suspect]
     Route: 065
  8. VINCRISTINE [Suspect]
     Route: 065
  9. RITUXIMAB [Suspect]
     Route: 065
     Dates: end: 20080501
  10. ETOPOSIDE [Suspect]
     Route: 065
     Dates: end: 20080501
  11. PREDNISONE TAB [Suspect]
     Route: 065
     Dates: end: 20080501
  12. VINCRISTINE [Suspect]
     Route: 065
     Dates: start: 20080101
  13. RITUXIMAB [Suspect]
     Indication: DIFFUSE LARGE B-CELL LYMPHOMA STAGE IV
     Route: 065
  14. RITUXIMAB [Suspect]
     Route: 065
  15. ETOPOSIDE [Suspect]
     Route: 065
  16. PREDNISONE TAB [Suspect]
     Route: 065
     Dates: start: 20080101
  17. DOXORUBICIN HYDROCHLORIDE [Suspect]
     Route: 042
  18. VINCRISTINE [Suspect]
     Route: 065
  19. ETOPOSIDE [Suspect]
     Route: 065
  20. PREDNISONE TAB [Suspect]
     Route: 065
  21. EMTRICITABINE/TENOFOVIR DISOPROXIL FUMARATE [Concomitant]
     Indication: PRODUCT USED FOR UNKNOWN INDICATION
     Route: 065
  22. DOXORUBICIN HYDROCHLORIDE [Suspect]
     Route: 042
  23. VINCRISTINE [Suspect]
     Route: 065
  24. RITUXIMAB [Suspect]
     Route: 065
  25. ETOPOSIDE [Suspect]
     Route: 065
     Dates: start: 20080101
  26. PREDNISONE TAB [Suspect]
     Route: 065
  27. LAMIVUDINE (EPIVIR HBV) [Concomitant]
     Indication: PROPHYLAXIS
     Route: 065
  28. CYCLOPHOSPHAMIDE [Suspect]
     Route: 065
     Dates: end: 20080501
  29. CYCLOPHOSPHAMIDE [Suspect]
     Route: 065
  30. CYCLOPHOSPHAMIDE [Suspect]
     Route: 065
  31. DOXORUBICIN HYDROCHLORIDE [Suspect]
     Indication: DIFFUSE LARGE B-CELL LYMPHOMA STAGE IV
     Route: 042
     Dates: end: 20080501
  32. DOXORUBICIN HYDROCHLORIDE [Suspect]
     Route: 042
  33. VINCRISTINE [Suspect]
     Indication: DIFFUSE LARGE B-CELL LYMPHOMA STAGE IV
     Route: 065
     Dates: end: 20080501
  34. RITUXIMAB [Suspect]
     Route: 065
  35. ETOPOSIDE [Suspect]
     Indication: DIFFUSE LARGE B-CELL LYMPHOMA STAGE IV
     Route: 065
  36. CYCLOPHOSPHAMIDE [Suspect]
     Indication: DIFFUSE LARGE B-CELL LYMPHOMA STAGE IV
     Route: 065
     Dates: start: 20080101
  37. PREDNISONE TAB [Suspect]
     Indication: DIFFUSE LARGE B-CELL LYMPHOMA STAGE IV
     Route: 065
  38. PREDNISONE TAB [Suspect]
     Route: 065
  39. NUCLEOSIDE REVERSE TRANSCRIPTASE INHIBITORS [Concomitant]
     Indication: PRODUCT USED FOR UNKNOWN INDICATION
     Route: 065

REACTIONS (1)
  - HEPATITIS D [None]
